FAERS Safety Report 19812575 (Version 3)
Quarter: 2022Q1

REPORT INFORMATION
  Report Type: Spontaneous
  Country: NL (occurrence: NL)
  Receive Date: 20210910
  Receipt Date: 20220313
  Transmission Date: 20220423
  Serious: Yes (Other)
  Sender: FDA-Public Use
  Company Number: NL-BRISTOL-MYERS SQUIBB COMPANY-BMS-2021-091175

PATIENT
  Age: 1 Year
  Sex: Female

DRUGS (1)
  1. TRIAMCINOLONE ACETONIDE [Suspect]
     Active Substance: TRIAMCINOLONE ACETONIDE
     Indication: Pericardial effusion
     Dosage: 140 MILLIGRAM
     Route: 032

REACTIONS (3)
  - Adrenal insufficiency [Unknown]
  - Condition aggravated [Unknown]
  - Intentional product use issue [Unknown]
